FAERS Safety Report 18053180 (Version 1)
Quarter: 2020Q3

REPORT INFORMATION
  Report Type: Spontaneous
  Country: JP (occurrence: JP)
  Receive Date: 20200722
  Receipt Date: 20200722
  Transmission Date: 20201103
  Serious: Yes (Life-Threatening)
  Sender: FDA-Public Use
  Company Number: NVSC2020JP204297

PATIENT
  Age: 26 Year
  Sex: Female

DRUGS (2)
  1. POTASSIUM CHLORIDE. [Suspect]
     Active Substance: POTASSIUM CHLORIDE
     Indication: CONGENITAL ANOMALY
     Dosage: 48 MMOL, QD
     Route: 065
  2. POTASSIUM CHLORIDE. [Suspect]
     Active Substance: POTASSIUM CHLORIDE
     Dosage: UNK (SLOW RELEASE 30 TABLETS), TOTAL 240 MMOL/L POTASSIUM
     Route: 065

REACTIONS (4)
  - Poisoning deliberate [Unknown]
  - Hyperkalaemia [Recovered/Resolved]
  - Product use in unapproved indication [Unknown]
  - Suicide attempt [Unknown]
